FAERS Safety Report 9076602 (Version 1)
Quarter: 2013Q1

REPORT INFORMATION
  Report Type: Report from Study
  Country: PR (occurrence: PR)
  Receive Date: 20130129
  Receipt Date: 20130129
  Transmission Date: 20140127
  Serious: Yes (Hospitalization)
  Sender: FDA-Public Use
  Company Number: PR-ABBOTT-12P-131-0899985-00

PATIENT
  Age: 11 None
  Sex: Female
  Weight: 39.5 kg

DRUGS (1)
  1. HUMIRA [Suspect]
     Indication: RHEUMATOID ARTHRITIS
     Route: 058
     Dates: start: 201111, end: 20120508

REACTIONS (2)
  - Herpes zoster [Recovered/Resolved]
  - Dermatitis [Recovered/Resolved]
